FAERS Safety Report 6614265-9 (Version None)
Quarter: 2010Q1

REPORT INFORMATION
  Report Type: 
  Country: None (occurrence: None)
  Receive Date: 20100304
  Receipt Date: 20100218
  Transmission Date: 20100710
  Serious: Yes (Hospitalization)
  Sender: FDA-Public Use
  Company Number: DE-WYE-G05685910

PATIENT
  Age: 49 Year
  Sex: Female

DRUGS (2)
  1. TREVILOR [Suspect]
     Indication: DEPRESSION
     Dosage: FOR SEVERAL YEARS TILL 25-OCT-2009: 75-150 MG/D; FROM 26-OCT-2009 TO 19-NOV-2009 225 MG/D
     Route: 048
  2. SERTRALINE HCL [Suspect]
     Indication: DEPRESSION
     Route: 048
     Dates: start: 20091120, end: 20091124

REACTIONS (3)
  - DRUG INEFFECTIVE [None]
  - DRUG WITHDRAWAL SYNDROME [None]
  - SUICIDAL IDEATION [None]
